FAERS Safety Report 7209680-9 (Version None)
Quarter: 2011Q1

REPORT INFORMATION
  Report Type: 
  Country: None (occurrence: None)
  Receive Date: 20110104
  Receipt Date: 20110103
  Transmission Date: 20110831
  Serious: Yes (Death)
  Sender: FDA-Public Use
  Company Number: FR-PFIZER INC-2010143319

PATIENT
  Age: 68 Year
  Sex: Male
  Weight: 63 kg

DRUGS (4)
  1. DI-ALGIREX [Concomitant]
     Indication: RHEUMATOID ARTHRITIS
     Dosage: 2 CAPSULES
  2. CELEBREX [Suspect]
     Indication: RHEUMATOID ARTHRITIS
     Dosage: 200 MG, 200-400MG DAILY
     Route: 048
     Dates: start: 20101019, end: 20101023
  3. CELEBREX [Suspect]
     Indication: PAIN
     Dosage: 200 MG, 2 CAPSULES, 1X/DAY
     Route: 048
     Dates: start: 20101024
  4. HYDROCORTANCYL [Concomitant]
     Indication: RHEUMATOID ARTHRITIS

REACTIONS (1)
  - ANAPHYLACTIC SHOCK [None]
